FAERS Safety Report 4884579-1 (Version None)
Quarter: 2006Q1

REPORT INFORMATION
  Report Type: 
  Country: None (occurrence: None)
  Receive Date: 20060119
  Receipt Date: 20060109
  Transmission Date: 20060701
  Serious: Yes (Death, Other)
  Sender: FDA-Public Use
  Company Number: IN-BRISTOL-MYERS SQUIBB COMPANY-13240213

PATIENT
  Age: 8 Year
  Sex: Male

DRUGS (4)
  1. BLEOMYCIN [Suspect]
     Indication: HODGKIN'S DISEASE
  2. ADRIAMYCIN PFS [Concomitant]
     Indication: HODGKIN'S DISEASE
  3. VINBLASTINE [Concomitant]
     Indication: HODGKIN'S DISEASE
  4. DACARBAZINE [Concomitant]
     Indication: HODGKIN'S DISEASE

REACTIONS (6)
  - ABDOMINAL INJURY [None]
  - PNEUMOMEDIASTINUM [None]
  - PNEUMONITIS [None]
  - PNEUMOPERICARDIUM [None]
  - PNEUMOTHORAX [None]
  - SUBCUTANEOUS EMPHYSEMA [None]
